FAERS Safety Report 7266046-3 (Version None)
Quarter: 2011Q1

REPORT INFORMATION
  Report Type: 
  Country: None (occurrence: None)
  Receive Date: 20110131
  Receipt Date: 20110128
  Transmission Date: 20110831
  Serious: No
  Sender: FDA-Public Use
  Company Number: US-PFIZER INC-2011020886

PATIENT
  Sex: Male
  Weight: 81.179 kg

DRUGS (3)
  1. CHANTIX [Suspect]
     Indication: SMOKING CESSATION THERAPY
     Dosage: 0.5 MG DAILY
     Route: 048
     Dates: start: 20101207
  2. CHANTIX [Suspect]
     Dosage: 0.5 MG, 2X/DAY
     Route: 048
     Dates: end: 20110103
  3. ALPRAZOLAM [Concomitant]
     Dosage: 0.5 MG, 2X/DAY
     Route: 048

REACTIONS (2)
  - MOOD ALTERED [None]
  - IRRITABILITY [None]
